FAERS Safety Report 7374766-5 (Version None)
Quarter: 2011Q1

REPORT INFORMATION
  Report Type: 
  Country: None (occurrence: None)
  Receive Date: 20110325
  Receipt Date: 20101021
  Transmission Date: 20110831
  Serious: No
  Sender: FDA-Public Use
  Company Number: US-MYLANLABS-2010S1019578

PATIENT
  Age: 49 Year
  Sex: Female

DRUGS (2)
  1. FENTANYL-100 [Suspect]
     Indication: CANCER PAIN
     Dosage: CHANGED Q72H
     Route: 062
     Dates: start: 20050101
  2. LORTAB [Concomitant]
     Dosage: DECREASED ON UNKNOWN DATE TO 1 1/2 TABLETS PER DAY

REACTIONS (2)
  - INCORRECT ROUTE OF DRUG ADMINISTRATION [None]
  - DRUG WITHDRAWAL SYNDROME [None]
